FAERS Safety Report 5005965-5 (Version None)
Quarter: 2006Q2

REPORT INFORMATION
  Report Type: 
  Country: None (occurrence: None)
  Receive Date: 20060517
  Receipt Date: 20060517
  Transmission Date: 20061013
  Serious: Yes (Hospitalization)
  Sender: FDA-Public Use
  Company Number: None

PATIENT
  Sex: Male

DRUGS (7)
  1. ATENOLOL [Suspect]
     Indication: HYPERTENSION
     Dosage: 25 MG DAILY PO
     Route: 048
     Dates: start: 20051013, end: 20060125
  2. COMBIVENT [Concomitant]
  3. FLUNISOLIDE [Concomitant]
  4. ZOLADEX [Concomitant]
  5. KETOCONAZOLE [Concomitant]
  6. PREDNISONE TAB [Concomitant]
  7. LISINOPRIL [Concomitant]

REACTIONS (3)
  - BRADYCARDIA [None]
  - CHEST DISCOMFORT [None]
  - DYSPNOEA EXERTIONAL [None]
